FAERS Safety Report 8394483-2 (Version None)
Quarter: 2012Q2

REPORT INFORMATION
  Report Type: 
  Country: None (occurrence: None)
  Receive Date: 20120530
  Receipt Date: 20120525
  Transmission Date: 20120825
  Serious: Yes (Hospitalization, Other)
  Sender: FDA-Public Use
  Company Number: PHHY2012BR044519

PATIENT
  Sex: Female

DRUGS (4)
  1. DIOVAN HCT [Suspect]
     Dosage: 1 DF (VALS 320MG, HYDR 25MG), DAILY
  2. DIOVAN HCT [Suspect]
     Indication: HYPERTENSION
     Dosage: 1 DF (VALS 160 MG, HYDR 12.5 MG), IN THE MORNING
     Dates: start: 20120112
  3. ENALAPRIL MALEATE [Suspect]
     Dosage: 20 MG, AT NIGHT
  4. DIOVAN HCT [Suspect]
     Dosage: 2 DF (VALS 160 MG, HYDR 12.5 MG) IN THE MORNING

REACTIONS (4)
  - HEADACHE [None]
  - FEELING HOT [None]
  - MALAISE [None]
  - BLOOD PRESSURE FLUCTUATION [None]
